FAERS Safety Report 7390545-7 (Version None)
Quarter: 2011Q2

REPORT INFORMATION
  Report Type: 
  Country: None (occurrence: None)
  Receive Date: 20110403
  Receipt Date: 20090817
  Transmission Date: 20111010
  Serious: Yes (Other)
  Sender: FDA-Public Use
  Company Number: PHHY2009DE67511

PATIENT
  Sex: Female

DRUGS (2)
  1. EXTAVIA [Suspect]
     Dosage: UNK
     Route: 058
     Dates: start: 20090914
  2. CORTISONE [Concomitant]

REACTIONS (11)
  - OTITIS MEDIA [None]
  - TONSILLITIS [None]
  - VISUAL IMPAIRMENT [None]
  - VERTIGO [None]
  - SINUSITIS [None]
  - INFLUENZA [None]
  - ERYTHEMA [None]
  - ACCIDENT [None]
  - MULTIPLE SCLEROSIS RELAPSE [None]
  - MUSCLE DISORDER [None]
  - PARAESTHESIA [None]
